FAERS Safety Report 7460980-7 (Version None)
Quarter: 2011Q2

REPORT INFORMATION
  Report Type: 
  Country: None (occurrence: None)
  Receive Date: 20110505
  Receipt Date: 20101027
  Transmission Date: 20111010
  Serious: No
  Sender: FDA-Public Use
  Company Number: US-AMGEN-USASP2010002034

PATIENT
  Age: 65 Year
  Sex: Female

DRUGS (3)
  1. PLAQUENIL [Concomitant]
  2. ENBREL [Suspect]
     Indication: RHEUMATOID ARTHRITIS
     Dosage: 50 MG, QWK
     Dates: start: 20100620
  3. METHOTREXATE [Concomitant]

REACTIONS (7)
  - COUGH [None]
  - DRUG INEFFECTIVE [None]
  - TREMOR [None]
  - MALAISE [None]
  - FATIGUE [None]
  - RASH [None]
  - BLADDER SPASM [None]
